FAERS Safety Report 4338099-3 (Version None)
Quarter: 2004Q2

REPORT INFORMATION
  Report Type: 
  Country: None (occurrence: None)
  Receive Date: 20040407
  Receipt Date: 20040326
  Transmission Date: 20050107
  Serious: Yes (Life-Threatening)
  Sender: FDA-Public Use
  Company Number: 205503

PATIENT
  Age: 57 Year
  Sex: Female
  Weight: 80 kg

DRUGS (8)
  1. MABTHERA(RITUXIMAB) CONC FOR SOLUTION FOR INFUSION [Suspect]
     Indication: NON-HODGKIN'S LYMPHOMA
     Dosage: 700 MG, 1/WEEK, INTRAVENOUS
     Route: 042
     Dates: start: 20010828, end: 20010919
  2. METHOTREXATE [Suspect]
     Indication: NON-HODGKIN'S LYMPHOMA
     Dosage: 6 G
     Dates: start: 20010428
  3. CARMUSTINE [Suspect]
     Indication: NON-HODGKIN'S LYMPHOMA
     Dosage: 570 MG
  4. VEPESID [Suspect]
     Indication: NON-HODGKIN'S LYMPHOMA
     Dosage: 470 MG, QD
  5. VINDESINE SULFATE [Suspect]
     Indication: NON-HODGKIN'S LYMPHOMA
     Dosage: 4 MG, INTRAVENOUS
     Route: 042
     Dates: start: 20010213, end: 20010330
  6. ADRIBLASTINE (DOXORUBICIN, DOXORUBICIN HYDROCHLORIDE) [Concomitant]
  7. CYCLOPHOSPHAMIDE [Concomitant]
  8. BLEOMYCINE (BLEOMYCIN SULFATE) [Concomitant]

REACTIONS (4)
  - GASTROINTESTINAL CARCINOMA [None]
  - PERITONEAL CARCINOMA [None]
  - RESPIRATORY DISTRESS [None]
  - SUBILEUS [None]
